FAERS Safety Report 4437960-9 (Version None)
Quarter: 2004Q3

REPORT INFORMATION
  Report Type: 
  Country: None (occurrence: None)
  Receive Date: 20040831
  Receipt Date: 20040823
  Transmission Date: 20050211
  Serious: Yes (Death)
  Sender: FDA-Public Use
  Company Number: ZA-GLAXOSMITHKLINE-B0343398A

PATIENT
  Sex: Female

DRUGS (4)
  1. ZYBAN [Suspect]
     Dosage: 150MG TWICE PER DAY
     Route: 048
     Dates: start: 20040520, end: 20040101
  2. THYROXINE [Concomitant]
  3. HORMONE REPLACEMENT THERAPY [Concomitant]
  4. AMLODIPINE [Concomitant]

REACTIONS (2)
  - DEATH [None]
  - MULTI-ORGAN FAILURE [None]
